FAERS Safety Report 19521619 (Version 2)
Quarter: 2021Q3

REPORT INFORMATION
  Report Type: Report from Study
  Country: None (occurrence: CA)
  Receive Date: 20210713
  Receipt Date: 20210808
  Transmission Date: 20211014
  Serious: Yes (Other)
  Sender: FDA-Public Use
  Company Number: CA-ABBVIE-21K-028-3983516-00

PATIENT
  Age: 50 Year
  Sex: Female

DRUGS (1)
  1. RINVOQ [Suspect]
     Active Substance: UPADACITINIB
     Indication: RHEUMATOID ARTHRITIS
     Route: 048
     Dates: start: 20210617, end: 2021

REACTIONS (7)
  - Drug ineffective [Unknown]
  - Expired product administered [Unknown]
  - Gingivitis ulcerative [Recovered/Resolved]
  - Pain [Unknown]
  - Neoplasm malignant [Unknown]
  - Thrombosis [Unknown]
  - Headache [Unknown]

NARRATIVE: CASE EVENT DATE: 2021
